FAERS Safety Report 8041131-7 (Version None)
Quarter: 2012Q1

REPORT INFORMATION
  Report Type: 
  Country: None (occurrence: None)
  Receive Date: 20120112
  Receipt Date: 20120104
  Transmission Date: 20120608
  Serious: Yes (Other)
  Sender: FDA-Public Use
  Company Number: US-BAYER-2011-105658

PATIENT
  Age: 20 Year
  Sex: Female
  Weight: 57.143 kg

DRUGS (5)
  1. SEASONIQUE [Concomitant]
     Dosage: UNK
     Dates: start: 20050101
  2. YASMIN [Suspect]
     Indication: PREMENSTRUAL SYNDROME
     Dosage: UNK
     Dates: start: 20051201, end: 20090901
  3. YASMIN [Suspect]
  4. YAZ [Suspect]
     Indication: PREMENSTRUAL SYNDROME
     Dosage: UNK
     Dates: start: 20051201, end: 20090901
  5. YAZ [Suspect]

REACTIONS (9)
  - INJURY [None]
  - PAIN [None]
  - EMOTIONAL DISTRESS [None]
  - IRRITABLE BOWEL SYNDROME [None]
  - BILIARY DYSKINESIA [None]
  - DYSPEPSIA [None]
  - PROCEDURAL PAIN [None]
  - ABDOMINAL PAIN [None]
  - GALLBLADDER DISORDER [None]
